FAERS Safety Report 17568954 (Version 1)
Quarter: 2020Q1

REPORT INFORMATION
  Report Type: Report from Study
  Country: DE (occurrence: DE)
  Receive Date: 20200321
  Receipt Date: 20200321
  Transmission Date: 20200409
  Serious: Yes (Other)
  Sender: FDA-Public Use
  Company Number: DE-AMGEN-DEUSP2020044255

PATIENT
  Age: 63 Year
  Sex: Female

DRUGS (1)
  1. REPATHA [Suspect]
     Active Substance: EVOLOCUMAB
     Indication: TYPE IIA HYPERLIPIDAEMIA
     Dosage: 140 MILLIGRAM, Q2WK
     Route: 065
     Dates: start: 2016, end: 201707

REACTIONS (5)
  - Muscle rupture [Unknown]
  - Myalgia [Unknown]
  - Muscle disorder [Unknown]
  - Incontinence [Unknown]
  - Sleep disorder [Unknown]

NARRATIVE: CASE EVENT DATE: 2016
